FAERS Safety Report 5911118-6 (Version None)
Quarter: 2008Q4

REPORT INFORMATION
  Report Type: 
  Country: None (occurrence: None)
  Receive Date: 20081007
  Receipt Date: 20080214
  Transmission Date: 20090506
  Serious: Yes (Hospitalization)
  Sender: FDA-Public Use
  Company Number: US-BRISTOL-MYERS SQUIBB COMPANY-14049902

PATIENT
  Age: 85 Year
  Sex: Female

DRUGS (9)
  1. AVAPRO [Suspect]
     Indication: HYPERTENSION
     Dosage: ONE TABLET DAILY
     Route: 048
     Dates: start: 20070301
  2. COREG [Suspect]
  3. NIFEREX [Concomitant]
     Route: 048
  4. IMDUR [Concomitant]
     Route: 048
  5. PACERONE [Concomitant]
     Dosage: ORAL 400MG/3D.
  6. HYDROCHLOROTHIAZIDE [Concomitant]
     Route: 048
  7. NEXIUM [Concomitant]
     Route: 048
  8. ISOSORBIDE MONONITRATE [Concomitant]
     Dosage: FREQUENCY-1/2 QD
  9. PENTOXIFYLLINE [Concomitant]

REACTIONS (2)
  - MEDICATION ERROR [None]
  - SYNCOPE [None]
